FAERS Safety Report 6417811-3 (Version None)
Quarter: 2009Q4

REPORT INFORMATION
  Report Type: 
  Country: None (occurrence: None)
  Receive Date: 20091028
  Receipt Date: 20091021
  Transmission Date: 20100525
  Serious: Yes (Hospitalization)
  Sender: FDA-Public Use
  Company Number: BR-AVENTIS-200921928GDDC

PATIENT
  Sex: Female
  Weight: 2.75 kg

DRUGS (8)
  1. LANTUS [Suspect]
     Route: 064
     Dates: start: 20000101, end: 20090101
  2. LANTUS [Suspect]
     Dosage: DOSE: VARIABLE DOSE
     Route: 064
     Dates: start: 20090101, end: 20090101
  3. LANTUS [Suspect]
     Route: 064
     Dates: start: 20090101
  4. OPTIPEN (INSULIN PUMP) [Suspect]
     Dates: start: 20000101
  5. APIDRA [Suspect]
     Dosage: DOSE: VARIABLE
     Route: 064
     Dates: start: 20090801
  6. OPTIPEN (INSULIN PUMP) [Suspect]
  7. NOVORAPID [Concomitant]
     Dosage: DOSE: VARIABLE
     Route: 064
     Dates: end: 20090801
  8. EUTHROID-1 [Concomitant]
     Route: 064

REACTIONS (2)
  - DRUG EXPOSURE DURING PREGNANCY [None]
  - TREMOR [None]
